FAERS Safety Report 4587432-6 (Version None)
Quarter: 2005Q1

REPORT INFORMATION
  Report Type: 
  Country: None (occurrence: None)
  Receive Date: 20050215
  Receipt Date: 20050202
  Transmission Date: 20050727
  Serious: Yes (Other)
  Sender: FDA-Public Use
  Company Number: 2005026113

PATIENT
  Age: 37 Year
  Sex: Male

DRUGS (4)
  1. BEXTRA [Suspect]
     Indication: POST PROCEDURAL PAIN
     Dosage: 40 MG (40 MG, 1 IN 1 D), ORAL
     Route: 048
     Dates: start: 20050124
  2. DICLOFENAC SODIUM [Concomitant]
  3. DOXYCYCLINE [Concomitant]
  4. RABEPRAZOLE SODIUM [Concomitant]

REACTIONS (7)
  - CONDITION AGGRAVATED [None]
  - DUODENITIS [None]
  - DYSPEPSIA [None]
  - DYSPHAGIA [None]
  - GASTRITIS [None]
  - OESOPHAGEAL ULCER [None]
  - PAIN [None]
